FAERS Safety Report 16636339 (Version 4)
Quarter: 2019Q4

REPORT INFORMATION
  Report Type: Other
  Country: CA (occurrence: CA)
  Receive Date: 20190726
  Receipt Date: 20191218
  Transmission Date: 20200122
  Serious: Yes (Other)
  Sender: FDA-Public Use
  Company Number: CA-PFIZER INC-2019315417

PATIENT
  Age: 44 Year
  Sex: Female

DRUGS (15)
  1. ALLOPURINOL. [Interacting]
     Active Substance: ALLOPURINOL
     Indication: MYOPATHY
     Dosage: 100 MG, UNK
     Route: 065
  2. AZATHIOPRINE. [Interacting]
     Active Substance: AZATHIOPRINE
     Indication: MYOPATHY
     Dosage: 25 MG, 1X/DAY
     Route: 065
  3. AZATHIOPRINE. [Interacting]
     Active Substance: AZATHIOPRINE
     Dosage: 150 MG, 1X/DAY
     Route: 065
  4. RITUXAN [Interacting]
     Active Substance: RITUXIMAB
     Indication: PRODUCT USED FOR UNKNOWN INDICATION
     Dosage: UNK
     Route: 065
  5. METHOTREXATE SODIUM. [Suspect]
     Active Substance: METHOTREXATE SODIUM
     Indication: MYOPATHY
     Dosage: UNK
     Route: 058
  6. AZATHIOPRINE. [Interacting]
     Active Substance: AZATHIOPRINE
     Dosage: 50 MG, 1X/DAY
     Route: 065
  7. AZATHIOPRINE. [Interacting]
     Active Substance: AZATHIOPRINE
     Dosage: 125 MG, 1X/DAY
     Route: 065
  8. ULORIC [Interacting]
     Active Substance: FEBUXOSTAT
     Indication: MYOPATHY
     Dosage: UNK
  9. ULORIC [Interacting]
     Active Substance: FEBUXOSTAT
     Indication: IMMUNE-MEDIATED MYOSITIS
     Dosage: 40 MG, 1X/DAY
     Route: 058
  10. ALLOPURINOL. [Interacting]
     Active Substance: ALLOPURINOL
     Indication: IMMUNE-MEDIATED MYOSITIS
     Dosage: 400 MG, UNK
     Route: 065
  11. MYCOPHENOLATE MOFETIL. [Interacting]
     Active Substance: MYCOPHENOLATE MOFETIL
     Indication: PRODUCT USED FOR UNKNOWN INDICATION
     Dosage: UNK
     Route: 058
  12. PLACEBO [Interacting]
     Active Substance: UNSPECIFIED INGREDIENT
     Dosage: UNK
  13. RITUXIMAB. [Interacting]
     Active Substance: RITUXIMAB
     Indication: PRODUCT USED FOR UNKNOWN INDICATION
     Dosage: UNK
  14. AZATHIOPRINE. [Interacting]
     Active Substance: AZATHIOPRINE
     Indication: IMMUNE-MEDIATED MYOSITIS
     Dosage: 250 MG, 1X/DAY
     Route: 065
  15. FEBUXOSTAT. [Interacting]
     Active Substance: FEBUXOSTAT
     Dosage: 40 MG, UNK

REACTIONS (9)
  - Drug ineffective [Recovering/Resolving]
  - Myopathy [Recovering/Resolving]
  - Eosinophilia [Recovering/Resolving]
  - Product use in unapproved indication [Recovering/Resolving]
  - Drug interaction [Recovering/Resolving]
  - Hepatic mass [Recovering/Resolving]
  - Pyrexia [Recovering/Resolving]
  - Drug reaction with eosinophilia and systemic symptoms [Recovering/Resolving]
  - Off label use [Recovering/Resolving]
